FAERS Safety Report 4863561-4 (Version None)
Quarter: 2005Q4

REPORT INFORMATION
  Report Type: 
  Country: None (occurrence: None)
  Receive Date: 20051222
  Receipt Date: 20050426
  Transmission Date: 20060501
  Serious: No
  Sender: FDA-Public Use
  Company Number: US-GLAXOSMITHKLINE-A0555814A

PATIENT
  Sex: Female

DRUGS (4)
  1. FLONASE [Suspect]
     Dosage: 2SPR TWICE PER DAY
     Route: 045
     Dates: start: 20050425
  2. ZYRTEC-D 12 HOUR [Concomitant]
  3. SPECTRACEF [Concomitant]
  4. MICROGESTIN FE 1/20 [Concomitant]

REACTIONS (5)
  - EYE SWELLING [None]
  - INTRAOCULAR PRESSURE TEST [None]
  - NASAL DISCOMFORT [None]
  - SINUS HEADACHE [None]
  - SINUSITIS [None]
